FAERS Safety Report 8257456-6 (Version None)
Quarter: 2012Q2

REPORT INFORMATION
  Report Type: 
  Country: None (occurrence: None)
  Receive Date: 20120403
  Receipt Date: 20120320
  Transmission Date: 20120825
  Serious: Yes (Death, Life-Threatening, Hospitalization)
  Sender: FDA-Public Use
  Company Number: FR-ROCHE-1050520

PATIENT
  Sex: Female
  Weight: 65 kg

DRUGS (4)
  1. HEPARIN SODIUM [Suspect]
     Indication: PULMONARY EMBOLISM
     Dosage: DOSE: 7470 U
     Route: 042
     Dates: start: 20110525
  2. TENECTEPLASE [Suspect]
     Indication: PULMONARY EMBOLISM
     Route: 040
     Dates: start: 20110525
  3. LASIX [Concomitant]
     Indication: ANURIA
     Route: 042
     Dates: start: 20110526
  4. LASIX [Concomitant]
     Route: 042
     Dates: start: 20110527

REACTIONS (2)
  - CIRCULATORY COLLAPSE [None]
  - MUSCLE HAEMORRHAGE [None]
